FAERS Safety Report 6427508-1 (Version None)
Quarter: 2009Q4

REPORT INFORMATION
  Report Type: 
  Country: None (occurrence: None)
  Receive Date: 20091104
  Receipt Date: 20091030
  Transmission Date: 20100525
  Serious: Yes (Life-Threatening, Hospitalization)
  Sender: FDA-Public Use
  Company Number: PHHY2009BR47596

PATIENT
  Age: 51 Year
  Sex: Male

DRUGS (2)
  1. TRILEPTAL [Suspect]
     Dosage: UNK
     Route: 048
     Dates: start: 20091030, end: 20091030
  2. CLONAZEPAM [Suspect]
     Dosage: 100MG
     Route: 048
     Dates: start: 20091030, end: 20091030

REACTIONS (3)
  - COMA [None]
  - HYPOTENSION [None]
  - SUICIDE ATTEMPT [None]
